FAERS Safety Report 5665264-5 (Version None)
Quarter: 2008Q1

REPORT INFORMATION
  Report Type: 
  Country: None (occurrence: None)
  Receive Date: 20080314
  Receipt Date: 20080228
  Transmission Date: 20080703
  Serious: No
  Sender: FDA-Public Use
  Company Number: US-ABBOTT-07P-163-0368883-00

PATIENT
  Sex: Female
  Weight: 68.1 kg

DRUGS (6)
  1. HUMIRA [Suspect]
     Indication: CROHN'S DISEASE
     Route: 058
     Dates: start: 20070411, end: 20070411
  2. HUMIRA [Suspect]
     Route: 058
     Dates: start: 20070425, end: 20070425
  3. HUMIRA [Suspect]
     Route: 058
     Dates: start: 20070101
  4. DETROL LA [Suspect]
     Indication: URINARY INCONTINENCE
     Route: 048
     Dates: start: 20070401, end: 20070510
  5. ALPRAZOLAM [Concomitant]
     Indication: ANXIETY
     Route: 048
  6. CYMBALTA [Concomitant]
     Indication: DEPRESSION
     Route: 048

REACTIONS (2)
  - CONSTIPATION [None]
  - INCONTINENCE [None]
